FAERS Safety Report 4577638-4 (Version None)
Quarter: 2005Q1

REPORT INFORMATION
  Report Type: 
  Country: None (occurrence: None)
  Receive Date: 20050208
  Receipt Date: 20050201
  Transmission Date: 20050727
  Serious: Yes (Death, Hospitalization)
  Sender: FDA-Public Use
  Company Number: TAP2004Q01635

PATIENT
  Age: 86 Year
  Sex: Male
  Weight: 65 kg

DRUGS (3)
  1. LUPRON DEPOT-3 [Suspect]
     Indication: SEXUAL OFFENCE
     Dosage: 3.75 MG, 1 IN 1 M, INTRAMUSCULAR
     Route: 030
     Dates: start: 20040824
  2. RAMIPRIL [Concomitant]
  3. DRUG USED IN DIABETES (DRUG USED IN DIABETES) [Concomitant]

REACTIONS (3)
  - FALL [None]
  - HIP FRACTURE [None]
  - MYOCARDIAL INFARCTION [None]
